FAERS Safety Report 17899997 (Version 1)
Quarter: 2020Q2

REPORT INFORMATION
  Report Type: Spontaneous
  Country: US (occurrence: US)
  Receive Date: 20200615
  Receipt Date: 20200615
  Transmission Date: 20200714
  Serious: Yes (Disabling)
  Sender: FDA-Public Use
  Company Number: None

PATIENT
  Age: 59 Year
  Sex: Female
  Weight: 83.25 kg

DRUGS (7)
  1. BRISDELLE [Concomitant]
     Active Substance: PAROXETINE MESYLATE
  2. CRANBERRY EXTRACT 500 MG [Concomitant]
  3. KRILL OIL [Concomitant]
     Active Substance: DIETARY SUPPLEMENT\KRILL OIL
  4. NP THYROID [Suspect]
     Active Substance: LEVOTHYROXINE\LIOTHYRONINE
     Indication: DRUG THERAPY
     Dosage: ?          QUANTITY:90 TABLET(S);?
     Route: 048
     Dates: start: 20190614, end: 20190804
  5. CENTRUM SILVER MULTI VITAMIN [Concomitant]
  6. CALCIUM 600 MG [Concomitant]
  7. PROBIOTIC [Concomitant]
     Active Substance: PROBIOTICS NOS

REACTIONS (3)
  - Dizziness [None]
  - Temperature intolerance [None]
  - Asthenia [None]

NARRATIVE: CASE EVENT DATE: 20190804
